FAERS Safety Report 24790530 (Version 2)
Quarter: 2025Q2

REPORT INFORMATION
  Report Type: Spontaneous
  Country: US (occurrence: US)
  Receive Date: 20241230
  Receipt Date: 20250513
  Transmission Date: 20250716
  Serious: No
  Sender: STALLERGENES
  Company Number: US-STALCOR-2024-AER-02987

PATIENT
  Age: 1 Year
  Sex: Female

DRUGS (7)
  1. CASHEW [Suspect]
     Active Substance: CASHEW
     Indication: Product used for unknown indication
     Dates: start: 20240219
  2. PEANUT [Suspect]
     Active Substance: PEANUT
     Indication: Product used for unknown indication
     Dates: start: 20240219
  3. EGG, WHOLE [Suspect]
     Active Substance: EGG
     Indication: Product used for unknown indication
     Dates: start: 20240219
  4. ENGLISH WALNUT [Concomitant]
     Active Substance: ENGLISH WALNUT
     Indication: Product used for unknown indication
     Dates: start: 20240219
  5. ALMOND [Concomitant]
     Active Substance: ALMOND
     Indication: Product used for unknown indication
     Dates: start: 20240219
  6. COCONUT [Concomitant]
     Active Substance: COCONUT
     Indication: Product used for unknown indication
     Dates: start: 20240219
  7. HAZELNUT [Concomitant]
     Active Substance: CORYLUS AMERICANA POLLEN\HAZELNUT, UNSPECIFIED
     Indication: Product used for unknown indication
     Dates: start: 20240219

REACTIONS (1)
  - Drug ineffective [Unknown]

NARRATIVE: CASE EVENT DATE: 20240219
